FAERS Safety Report 11230494 (Version 1)
Quarter: 2015Q3

REPORT INFORMATION
  Report Type: Spontaneous
  Country: AU (occurrence: AU)
  Receive Date: 20150701
  Receipt Date: 20150701
  Transmission Date: 20151125
  Serious: Yes (Life-Threatening, Hospitalization, Other)
  Sender: FDA-Public Use
  Company Number: PHHY2015AU078459

PATIENT
  Age: 59 Year
  Sex: Male

DRUGS (1)
  1. CERTICAN [Suspect]
     Active Substance: EVEROLIMUS
     Indication: RENAL TRANSPLANT
     Dosage: UNK
     Route: 048
     Dates: start: 2013

REACTIONS (3)
  - Apparent death [Unknown]
  - Deep vein thrombosis [Unknown]
  - Haematoma [Unknown]

NARRATIVE: CASE EVENT DATE: 20150609
